FAERS Safety Report 7497821-8 (Version None)
Quarter: 2011Q2

REPORT INFORMATION
  Report Type: 
  Country: None (occurrence: None)
  Receive Date: 20110524
  Receipt Date: 20110428
  Transmission Date: 20111010
  Serious: Yes (Hospitalization, Other)
  Sender: FDA-Public Use
  Company Number: US-BAYER-201018311NA

PATIENT
  Age: 20 Year
  Sex: Female
  Weight: 46 kg

DRUGS (7)
  1. YAZ [Suspect]
     Indication: POLYCYSTIC OVARIES
  2. NAPROXEN SODIUM + PSEUDOEPHEDRINE [Concomitant]
  3. YAZ [Suspect]
     Indication: ACNE
     Dosage: UNK UNK, UNK
     Route: 048
     Dates: start: 20090201
  4. SPIRONOLACTONE [Concomitant]
     Indication: POLYCYSTIC OVARIES
     Dosage: UNK
     Dates: start: 20030101, end: 20090101
  5. NSAID'S [Concomitant]
     Dosage: UNK
     Dates: start: 20000101, end: 20090101
  6. ZYRTEC [Concomitant]
     Indication: SEASONAL ALLERGY
  7. SPIRONOLACTONE [Concomitant]
     Indication: ACNE

REACTIONS (2)
  - PANCREATITIS [None]
  - GALLBLADDER DISORDER [None]
